FAERS Safety Report 8464993-8 (Version None)
Quarter: 2012Q2

REPORT INFORMATION
  Report Type: 
  Country: None (occurrence: None)
  Receive Date: 20120626
  Receipt Date: 20120618
  Transmission Date: 20120825
  Serious: Yes (Other)
  Sender: FDA-Public Use
  Company Number: US-ASTELLAS-2012US005555

PATIENT
  Sex: Female
  Weight: 77 kg

DRUGS (1)
  1. VESICARE [Suspect]
     Indication: HYPERTONIC BLADDER
     Dosage: 1 DF, UID/QD
     Route: 048
     Dates: start: 20120301

REACTIONS (5)
  - BALANCE DISORDER [None]
  - VISION BLURRED [None]
  - DYSARTHRIA [None]
  - DYSPEPSIA [None]
  - DIZZINESS [None]
